FAERS Safety Report 11090468 (Version 2)
Quarter: 2015Q2

REPORT INFORMATION
  Report Type: Spontaneous
  Country: US (occurrence: US)
  Receive Date: 20150505
  Receipt Date: 20150622
  Transmission Date: 20150821
  Serious: Yes (Other)
  Sender: FDA-Public Use
  Company Number: US-ELI_LILLY_AND_COMPANY-US201504008820

PATIENT
  Age: 57 Year
  Sex: Male
  Weight: 73.47 kg

DRUGS (5)
  1. LOVASTATIN. [Concomitant]
     Active Substance: LOVASTATIN
     Dosage: 20 MG, UNKNOWN
     Route: 065
  2. ANDROGEL [Suspect]
     Active Substance: TESTOSTERONE
     Indication: BLOOD TESTOSTERONE DECREASED
     Dosage: UNK, UNKNOWN
     Route: 065
     Dates: start: 201102, end: 2013
  3. AXIRON [Suspect]
     Active Substance: TESTOSTERONE
     Indication: BLOOD TESTOSTERONE DECREASED
     Dosage: UNK UNK, MONTHLY (1/M)
     Route: 065
     Dates: start: 20120306, end: 2013
  4. LISINOPRIL. [Concomitant]
     Active Substance: LISINOPRIL
     Dosage: 20 MG, UNKNOWN
     Route: 065
     Dates: start: 2007
  5. CITALOPRAM [Concomitant]
     Active Substance: CITALOPRAM HYDROBROMIDE
     Dosage: 40 MG, UNKNOWN
     Route: 065
     Dates: start: 2011

REACTIONS (2)
  - Deep vein thrombosis [Recovered/Resolved]
  - Embolism venous [Recovered/Resolved]

NARRATIVE: CASE EVENT DATE: 20130125
